FAERS Safety Report 4437116-X (Version None)
Quarter: 2004Q3

REPORT INFORMATION
  Report Type: 
  Country: None (occurrence: None)
  Receive Date: 20040726
  Receipt Date: 20040323
  Transmission Date: 20050211
  Serious: No
  Sender: FDA-Public Use
  Company Number: USA040362826

PATIENT
  Age: 78 Year
  Sex: Female

DRUGS (1)
  1. FORTEO [Suspect]
     Indication: BONE DISORDER

REACTIONS (4)
  - BACK PAIN [None]
  - DIZZINESS [None]
  - DYSKINESIA [None]
  - MUSCLE SPASMS [None]
